FAERS Safety Report 4389862-4 (Version None)
Quarter: 2004Q2

REPORT INFORMATION
  Report Type: 
  Country: None (occurrence: None)
  Receive Date: 20040630
  Receipt Date: 20040615
  Transmission Date: 20050107
  Serious: Yes (Life-Threatening, Hospitalization)
  Sender: FDA-Public Use
  Company Number: 236765

PATIENT
  Age: 13 Year
  Sex: Female
  Weight: 53 kg

DRUGS (3)
  1. NORDITROPIN SIMPLEXX [Suspect]
     Indication: GROWTH HORMONE DEFICIENCY
     Dosage: 1.7 MG, QD, SUBCUTANEOUS
     Route: 058
     Dates: start: 20040330, end: 20040330
  2. TRIMETON (CHLORPHENAMINE MALEATE) [Concomitant]
  3. ADRENALIN (EPINEPHRINE) [Concomitant]

REACTIONS (1)
  - ANAPHYLACTIC SHOCK [None]
